FAERS Safety Report 5834185-7 (Version None)
Quarter: 2008Q3

REPORT INFORMATION
  Report Type: 
  Country: None (occurrence: None)
  Receive Date: 20080801
  Receipt Date: 20080716
  Transmission Date: 20090109
  Serious: Yes (Death, Life-Threatening, Hospitalization)
  Sender: FDA-Public Use
  Company Number: 2008AL008509

PATIENT
  Age: 77 Year
  Sex: Female
  Weight: 68.0396 kg

DRUGS (2)
  1. DIGOXIN [Suspect]
     Indication: ARRHYTHMIA
     Dosage: 0.2M DAILY PO
     Route: 048
     Dates: start: 20060829, end: 20070629
  2. DIGOXIN [Suspect]
     Indication: ARRHYTHMIA
     Dosage: 0.12MG DAILY PO
     Route: 048
     Dates: start: 20070623, end: 20070829

REACTIONS (5)
  - CONSTIPATION [None]
  - LETHARGY [None]
  - OVERDOSE [None]
  - PHOTOPHOBIA [None]
  - VISUAL IMPAIRMENT [None]
